FAERS Safety Report 5016179-7 (Version None)
Quarter: 2006Q2

REPORT INFORMATION
  Report Type: 
  Country: None (occurrence: None)
  Receive Date: 20060601
  Receipt Date: 20060522
  Transmission Date: 20061013
  Serious: Yes (Hospitalization)
  Sender: FDA-Public Use
  Company Number: US-MERCK-0605USA04166

PATIENT
  Age: 85 Year
  Sex: Female

DRUGS (1)
  1. FOSAMAX [Suspect]
     Indication: OSTEOPOROSIS
     Route: 048
     Dates: start: 19940101

REACTIONS (5)
  - FACIAL BONES FRACTURE [None]
  - FALL [None]
  - PATELLA FRACTURE [None]
  - SOFT TISSUE INJURY [None]
  - SPINAL FRACTURE [None]
